FAERS Safety Report 8999041 (Version 7)
Quarter: 2013Q2

REPORT INFORMATION
  Report Type: Report from Study
  Country: FR (occurrence: FR)
  Receive Date: 20130103
  Receipt Date: 20130523
  Transmission Date: 20140414
  Serious: Yes (Hospitalization)
  Sender: FDA-Public Use
  Company Number: FR-BRISTOL-MYERS SQUIBB COMPANY-17244708

PATIENT
  Age: 61 Year
  Sex: Male

DRUGS (7)
  1. CARBOPLATIN [Suspect]
     Indication: NON-SMALL CELL LUNG CANCER METASTATIC
     Dosage: 1DF=6AUC?09AUG2012-18OCT2012?30NOV2012-ONG
     Route: 042
     Dates: start: 20120809
  2. PACLITAXEL [Suspect]
     Indication: NON-SMALL CELL LUNG CANCER METASTATIC
     Dosage: 9OCT12-18OCT12(70 DAYS), 30NOV12-ONG
     Route: 042
     Dates: start: 20120809
  3. AMLOR [Concomitant]
     Indication: HYPERTENSION
     Dates: start: 2004
  4. KARDEGIC [Concomitant]
     Indication: HYPERTENSION
     Dosage: ONGOING
     Dates: start: 20120705
  5. ZOCOR [Concomitant]
     Indication: HYPERLIPIDAEMIA
     Dates: start: 2004
  6. PARACETAMOL [Concomitant]
     Indication: MUSCULOSKELETAL PAIN
     Dates: start: 20120815
  7. TRAMADOL [Concomitant]
     Indication: MUSCULOSKELETAL PAIN
     Dates: start: 20121009, end: 20121218

REACTIONS (4)
  - Weight decreased [Unknown]
  - Nausea [Unknown]
  - Fatigue [Unknown]
  - Anaemia [Unknown]
